FAERS Safety Report 6411237-4 (Version None)
Quarter: 2009Q4

REPORT INFORMATION
  Report Type: 
  Country: None (occurrence: None)
  Receive Date: 20091020
  Receipt Date: 20091007
  Transmission Date: 20100525
  Serious: Yes (Other)
  Sender: FDA-Public Use
  Company Number: DE-1171039

PATIENT

DRUGS (1)
  1. FLUORESCEIN SODIUM        (FLUORESCEIN SODIUM) [Suspect]
     Dosage: INTRAVENOUS BOLUS
     Route: 040

REACTIONS (2)
  - SHOCK [None]
  - UNRESPONSIVE TO STIMULI [None]
